FAERS Safety Report 7929948-8 (Version None)
Quarter: 2011Q4

REPORT INFORMATION
  Report Type: 
  Country: None (occurrence: None)
  Receive Date: 20111117
  Receipt Date: 20111108
  Transmission Date: 20120403
  Serious: Yes (Death, Hospitalization)
  Sender: FDA-Public Use
  Company Number: 1078349

PATIENT
  Age: 67 Year
  Sex: Female
  Weight: 53 kg

DRUGS (2)
  1. CYTARABINE [Suspect]
     Indication: ACUTE MYELOID LEUKAEMIA
     Dosage: 100 MG/M2, IN 1 CYCLICAL INFUSION OVER 24 HOURS FOR 7 DAYS COURSE (TOTAL DOSE: 2170 MG)
     Dates: start: 20110830, end: 20110921
  2. DAUNORUBICIN HCL [Suspect]
     Indication: ACUTE MYELOID LEUKAEMIA
     Dosage: 60 MG/M2, IN 1 CYCLICAL
     Dates: start: 20110830, end: 20110916

REACTIONS (5)
  - INTRAVENTRICULAR HAEMORRHAGE [None]
  - UNRESPONSIVE TO STIMULI [None]
  - PUPIL FIXED [None]
  - HAEMORRHAGE INTRACRANIAL [None]
  - THROMBOCYTOPENIA [None]
